FAERS Safety Report 4713804-2 (Version None)
Quarter: 2005Q3

REPORT INFORMATION
  Report Type: 
  Country: None (occurrence: None)
  Receive Date: 20050713
  Receipt Date: 20050628
  Transmission Date: 20060218
  Serious: Yes (Hospitalization, Other)
  Sender: FDA-Public Use
  Company Number: USA0506101547

PATIENT
  Age: 77 Year
  Sex: Female

DRUGS (11)
  1. FORTEO [Suspect]
     Dates: start: 20040101
  2. PREDNISONE [Concomitant]
  3. PLAVIX [Concomitant]
  4. PROTONIX (PANTOPRAZOLE0 [Concomitant]
  5. POTASSIUM CHLORIDE [Concomitant]
  6. FUROSEMIDE (FUROSEMIDE    / 00032601/) [Concomitant]
  7. DICYCLOMINE [Concomitant]
  8. DIGOXIN [Concomitant]
  9. THIORIDAZINE HCL [Concomitant]
  10. ACETAMINOPHEN [Concomitant]
  11. ALBUTEROL [Concomitant]

REACTIONS (5)
  - CEREBROVASCULAR ACCIDENT [None]
  - DEVICE FAILURE [None]
  - DIFFICULTY IN WALKING [None]
  - HEARING IMPAIRED [None]
  - PHARMACEUTICAL PRODUCT COMPLAINT [None]
